FAERS Safety Report 7023862-0 (Version None)
Quarter: 2010Q3

REPORT INFORMATION
  Report Type: 
  Country: None (occurrence: None)
  Receive Date: 20100916
  Receipt Date: 20100528
  Transmission Date: 20110219
  Serious: Yes (Other)
  Sender: FDA-Public Use
  Company Number: DKLU1062648

PATIENT
  Age: 2 Year
  Sex: Female

DRUGS (4)
  1. SABRIL [Suspect]
  2. PHENOBARBITAL TAB [Concomitant]
  3. KEPPRA [Concomitant]
  4. TOPAMAX [Concomitant]

REACTIONS (1)
  - CONVULSION [None]
